FAERS Safety Report 4346456-4 (Version None)
Quarter: 2004Q2

REPORT INFORMATION
  Report Type: 
  Country: None (occurrence: None)
  Receive Date: 20040426
  Receipt Date: 20030325
  Transmission Date: 20050107
  Serious: No
  Sender: FDA-Public Use
  Company Number: US-BRISTOL-MYERS SQUIBB COMPANY-12221552

PATIENT
  Age: 64 Year
  Sex: Female

DRUGS (2)
  1. PARAPLATIN [Suspect]
     Indication: OVARIAN CANCER
     Dosage: INITIAL DOSE ON 14-JAN-2003 (TOTAL OF 4 TREATMENTS)
     Route: 042
     Dates: start: 20030226, end: 20030226
  2. TAXOL [Concomitant]
     Indication: OVARIAN CANCER
     Route: 042
     Dates: start: 20030226, end: 20030226

REACTIONS (1)
  - ADVERSE EVENT [None]
